FAERS Safety Report 20602259 (Version 1)
Quarter: 2022Q1

REPORT INFORMATION
  Report Type: Spontaneous
  Country: None (occurrence: US)
  Receive Date: 20220316
  Receipt Date: 20220316
  Transmission Date: 20220423
  Serious: Yes (Other)
  Sender: FDA-Public Use
  Company Number: US-Performance Health, LLC-2126834

PATIENT
  Sex: Female

DRUGS (1)
  1. BIOFREEZE PATCH MULTI PACK [Suspect]
     Active Substance: MENTHOL
     Indication: Analgesic therapy
     Route: 061
     Dates: start: 20220110, end: 20220111

REACTIONS (3)
  - Pruritus [Unknown]
  - Flushing [Unknown]
  - Blister [Unknown]

NARRATIVE: CASE EVENT DATE: 20220111
